FAERS Safety Report 25767813 (Version 1)
Quarter: 2025Q3

REPORT INFORMATION
  Report Type: Spontaneous
  Country: US (occurrence: None)
  Receive Date: 20250905
  Receipt Date: 20250905
  Transmission Date: 20251021
  Serious: No
  Sender: FDA-CTU
  Company Number: None

PATIENT
  Age: 83 Year
  Sex: Male

DRUGS (11)
  1. REPATHA [Suspect]
     Active Substance: EVOLOCUMAB
     Indication: Blood cholesterol increased
     Dates: start: 20240926
  2. ALLOPURINOL [Concomitant]
     Active Substance: ALLOPURINOL
     Dates: start: 20190129
  3. ASPIRIN [Concomitant]
     Active Substance: ASPIRIN
     Dates: start: 20190129
  4. FAMOTIDINE [Concomitant]
     Active Substance: FAMOTIDINE
     Dates: start: 20190129
  5. Folic Acid 1 mg [Concomitant]
     Dates: start: 20190129
  6. SYNTHROID [Concomitant]
     Active Substance: LEVOTHYROXINE SODIUM
     Dates: start: 20190129
  7. ZOLPIDEM [Concomitant]
     Active Substance: ZOLPIDEM TARTRATE
     Dates: start: 20190129
  8. VITAMIN D3 [Concomitant]
     Active Substance: CHOLECALCIFEROL
     Dates: start: 20190129
  9. RAMIPRIL [Concomitant]
     Active Substance: RAMIPRIL
     Dates: start: 20190129
  10. AMLODIPINE [Concomitant]
     Active Substance: AMLODIPINE BESYLATE
     Dates: start: 20230404
  11. CARVEDILOL [Concomitant]
     Active Substance: CARVEDILOL
     Dates: start: 20240925

REACTIONS (1)
  - Therapy non-responder [None]

NARRATIVE: CASE EVENT DATE: 20250820
